FAERS Safety Report 4433083-3 (Version None)
Quarter: 2004Q3

REPORT INFORMATION
  Report Type: 
  Country: None (occurrence: None)
  Receive Date: 20040823
  Receipt Date: 20040816
  Transmission Date: 20050211
  Serious: Yes (Life-Threatening)
  Sender: FDA-Public Use
  Company Number: HYPQ-PR-0408L-0006

PATIENT
  Age: 58 Year
  Sex: Male

DRUGS (2)
  1. HYPAQUE [Suspect]
     Indication: CELLULITIS
     Dosage: SINGLE DOSE, EXTRAVASATION
  2. HYPAQUE [Suspect]
     Indication: FISTULA
     Dosage: SINGLE DOSE, EXTRAVASATION

REACTIONS (3)
  - BLOOD GLUCOSE DECREASED [None]
  - GRAND MAL CONVULSION [None]
  - INJECTION SITE EXTRAVASATION [None]
